FAERS Safety Report 7348168-1 (Version None)
Quarter: 2011Q1

REPORT INFORMATION
  Report Type: 
  Country: None (occurrence: None)
  Receive Date: 20110311
  Receipt Date: 20100909
  Transmission Date: 20110831
  Serious: Yes (Hospitalization, Other)
  Sender: FDA-Public Use
  Company Number: US-BAYER-201027657NA

PATIENT
  Sex: Female
  Weight: 77.098 kg

DRUGS (26)
  1. YASMIN [Suspect]
     Indication: ORAL CONTRACEPTION
  2. MIRALAX [Concomitant]
  3. VALIUM [Concomitant]
  4. ACETAMINOPHEN W/ PROPOXYPHENE HCL [Concomitant]
     Indication: PAIN
     Dosage: UNK
     Dates: start: 20081201
  5. OCELLA [Suspect]
     Indication: ORAL CONTRACEPTION
     Dosage: UNK
     Dates: start: 20080701, end: 20090101
  6. REGLAN [Concomitant]
     Dosage: 10 MG, UNK
  7. BENTYL [Concomitant]
     Dosage: 20 MG, UNK
  8. NEXIUM [Concomitant]
     Dosage: 40 MG, UNK
  9. DARVOCET [Concomitant]
  10. LORTAB [Concomitant]
  11. YAZ [Suspect]
     Indication: MENSTRUAL CYCLE MANAGEMENT
     Dosage: UNK UNK, UNK
     Route: 048
     Dates: start: 20060301, end: 20090715
  12. MOM [Concomitant]
  13. METOCLOPRAMIDE HCL [Concomitant]
     Dosage: 5 MG, UNK
  14. TRAMADOL HCL [Concomitant]
  15. REGLAN [Concomitant]
     Dosage: UNK
     Dates: start: 20080901
  16. OCELLA [Suspect]
     Dosage: UNK
     Dates: start: 20090301, end: 20090701
  17. ZOFRAN [Concomitant]
  18. YASMIN [Suspect]
     Indication: MENSTRUAL CYCLE MANAGEMENT
     Dosage: UNK UNK, UNK
     Route: 048
     Dates: start: 20060301, end: 20091001
  19. OCELLA [Suspect]
     Dosage: UNK
     Dates: start: 20090901
  20. CYMBALTA [Concomitant]
     Indication: DEPRESSION
     Dosage: 30 MG, UNK
  21. DILAUDID [Concomitant]
  22. YAZ [Suspect]
     Indication: ORAL CONTRACEPTION
  23. OCELLA [Suspect]
     Indication: MENSTRUAL CYCLE MANAGEMENT
     Dosage: UNK UNK, UNK
     Route: 048
     Dates: start: 20060301, end: 20090715
  24. NEXIUM [Concomitant]
     Dosage: UNK
     Dates: start: 20080901
  25. UNCODEABLE ^UNCLASSIFIABLE^ [Concomitant]
  26. DICYCLOMINE [Concomitant]
     Indication: ABDOMINAL PAIN UPPER
     Dosage: 10 MG, UNK

REACTIONS (16)
  - CHOLESTEROSIS [None]
  - ANXIETY [None]
  - PROCEDURAL PAIN [None]
  - ABDOMINAL PAIN [None]
  - ABDOMINAL TENDERNESS [None]
  - GASTROOESOPHAGEAL REFLUX DISEASE [None]
  - BACK PAIN [None]
  - SUICIDE ATTEMPT [None]
  - VOMITING [None]
  - BILIARY COLIC [None]
  - ABDOMINAL PAIN UPPER [None]
  - CHOLECYSTITIS CHRONIC [None]
  - NAUSEA [None]
  - BIPOLAR I DISORDER [None]
  - CONVULSION [None]
  - CHOLELITHIASIS [None]
